FAERS Safety Report 5321789-3 (Version None)
Quarter: 2007Q2

REPORT INFORMATION
  Report Type: 
  Country: None (occurrence: None)
  Receive Date: 20070510
  Receipt Date: 20070430
  Transmission Date: 20071010
  Serious: Yes (Other)
  Sender: FDA-Public Use
  Company Number: US-PFIZER INC-2007035432

PATIENT
  Sex: Male
  Weight: 95.3 kg

DRUGS (5)
  1. LIPITOR [Suspect]
     Indication: BLOOD CHOLESTEROL INCREASED
  2. ATACAND [Concomitant]
  3. ACETYLSALICYLIC ACID SRT [Concomitant]
  4. VITAMIN CAP [Concomitant]
  5. ZETIA [Concomitant]

REACTIONS (1)
  - MUSCLE ATROPHY [None]
